FAERS Safety Report 11087537 (Version 2)
Quarter: 2015Q2

REPORT INFORMATION
  Report Type: Spontaneous
  Country: US (occurrence: US)
  Receive Date: 20150504
  Receipt Date: 20150511
  Transmission Date: 20150821
  Serious: No
  Sender: FDA-Public Use
  Company Number: US-009507513-1504USA023020

PATIENT
  Sex: Female
  Weight: 81.63 kg

DRUGS (13)
  1. ANASTROZOLE. [Concomitant]
     Active Substance: ANASTROZOLE
  2. ASPIRIN. [Concomitant]
     Active Substance: ASPIRIN
  3. SPIRIVA [Concomitant]
     Active Substance: TIOTROPIUM BROMIDE MONOHYDRATE
  4. PROAIR HFA [Concomitant]
     Active Substance: ALBUTEROL SULFATE
  5. JANUVIA [Suspect]
     Active Substance: SITAGLIPTIN PHOSPHATE
     Indication: DIABETES MELLITUS
     Dosage: 1 DF, QD (1 PILL 1 DAY BY MONTH)
     Dates: start: 20140313, end: 20140404
  6. JANUVIA [Suspect]
     Active Substance: SITAGLIPTIN PHOSPHATE
     Indication: HYPERSENSITIVITY
  7. HUMALOG [Concomitant]
     Active Substance: INSULIN LISPRO
     Dosage: 15/25 (UNSPECIFIED UNITS)
  8. VITAMIN D [Concomitant]
     Active Substance: CHOLECALCIFEROL
  9. TEMAZEPAM. [Concomitant]
     Active Substance: TEMAZEPAM
  10. CALCIUM (UNSPECIFIED) [Concomitant]
     Active Substance: CALCIUM
  11. NATURAL FACTORS COENZYME Q10 [Concomitant]
  12. SYNTHROID [Concomitant]
     Active Substance: LEVOTHYROXINE SODIUM
  13. DILTIAZEM HYDROCHLORIDE. [Concomitant]
     Active Substance: DILTIAZEM HYDROCHLORIDE

REACTIONS (4)
  - Hyperhidrosis [Recovered/Resolved]
  - Flatulence [Recovered/Resolved]
  - Urine output increased [Recovered/Resolved]
  - Pruritus [Recovered/Resolved]

NARRATIVE: CASE EVENT DATE: 20140313
